FAERS Safety Report 7360233-1 (Version None)
Quarter: 2011Q1

REPORT INFORMATION
  Report Type: 
  Country: None (occurrence: None)
  Receive Date: 20110307
  Receipt Date: 20110216
  Transmission Date: 20110831
  Serious: Yes (Other)
  Sender: FDA-Public Use
  Company Number: 2011P1004150

PATIENT
  Age: 61 Year
  Sex: Male
  Weight: 79.3795 kg

DRUGS (11)
  1. AMBIEN [Concomitant]
  2. ASPIRIN [Concomitant]
  3. FERROUS SULFATE TAB [Concomitant]
  4. LIPITOR [Concomitant]
  5. NYSTATIN + TRIAMCINOLONE ACETONIDE CREAM USP (NO PREF. NAME) [Suspect]
     Indication: RASH
     Dosage: ; BID; TOP
     Route: 061
     Dates: start: 20101124
  6. COREG [Concomitant]
  7. PERCOCET [Concomitant]
  8. ALL KINDS OF HEART MEDICATION [Concomitant]
  9. NEXIUM [Concomitant]
  10. DIGOXIN [Concomitant]
  11. LASIX [Concomitant]

REACTIONS (3)
  - DRUG INEFFECTIVE [None]
  - PRODUCT QUALITY ISSUE [None]
  - CARDIAC OPERATION [None]
